FAERS Safety Report 14843693 (Version 1)
Quarter: 2018Q2

REPORT INFORMATION
  Report Type: Spontaneous
  Country: BE (occurrence: BE)
  Receive Date: 20180503
  Receipt Date: 20180503
  Transmission Date: 20180711
  Serious: Yes (Other)
  Sender: FDA-Public Use
  Company Number: PHHY2017BE202887

PATIENT
  Age: 43 Year
  Sex: Male

DRUGS (7)
  1. ERBITUX [Suspect]
     Active Substance: CETUXIMAB
     Dosage: 150 MG/M2, UNK
     Route: 065
  2. FLUOROURACIL. [Suspect]
     Active Substance: FLUOROURACIL
     Indication: MUCOEPIDERMOID CARCINOMA
     Dosage: 750 MG/M2, UNK
     Route: 065
  3. DEXAMETHASONE. [Concomitant]
     Active Substance: DEXAMETHASONE
     Indication: PREMEDICATION
     Dosage: 16 MG, UNK
     Route: 065
  4. DOCETAXEL. [Suspect]
     Active Substance: DOCETAXEL
     Indication: MUCOEPIDERMOID CARCINOMA
     Dosage: 75 MG/M2, UNK
     Route: 065
  5. CISPLATINE [Suspect]
     Active Substance: CISPLATIN
     Indication: MUCOEPIDERMOID CARCINOMA
     Dosage: 75 MG/M2, UNK
     Route: 065
  6. ERBITUX [Suspect]
     Active Substance: CETUXIMAB
     Indication: MUCOEPIDERMOID CARCINOMA
     Dosage: 400 MG/M2, (LOADING DOSE)
     Route: 065
  7. CIPROFLOXACIN. [Concomitant]
     Active Substance: CIPROFLOXACIN
     Indication: PRODUCT USED FOR UNKNOWN INDICATION
     Dosage: 500 MG, UNK
     Route: 065

REACTIONS (8)
  - Dry mouth [Unknown]
  - Alopecia [Unknown]
  - Anaemia [Unknown]
  - Hypotension [Unknown]
  - Telangiectasia [Unknown]
  - Rash [Unknown]
  - Skin atrophy [Unknown]
  - Neutropenia [Unknown]
